FAERS Safety Report 6270629-7 (Version None)
Quarter: 2009Q3

REPORT INFORMATION
  Report Type: 
  Country: None (occurrence: None)
  Receive Date: 20090716
  Receipt Date: 20090708
  Transmission Date: 20100115
  Serious: Yes (Hospitalization, Other)
  Sender: FDA-Public Use
  Company Number: US-MERCK-0905USA00169

PATIENT
  Age: 58 Year
  Sex: Female

DRUGS (6)
  1. CHLORPHENIRAMINE MALEATE AND PSEUDOEPHEDRINE HCL [Concomitant]
     Indication: HYPERSENSITIVITY
     Route: 065
     Dates: start: 19850101
  2. FOSAMAX [Suspect]
     Indication: OSTEOPOROSIS
     Route: 048
     Dates: start: 19980101, end: 20060521
  3. FOSAMAX [Suspect]
     Route: 048
     Dates: start: 19990901
  4. FOSAMAX [Suspect]
     Indication: RESORPTION BONE INCREASED
     Route: 048
     Dates: start: 19980101, end: 20060521
  5. FOSAMAX [Suspect]
     Route: 048
     Dates: start: 19990901
  6. SYNTHROID [Concomitant]
     Indication: THYROID DISORDER
     Route: 065
     Dates: start: 19900101

REACTIONS (31)
  - ABDOMINAL DISCOMFORT [None]
  - ABDOMINAL PAIN [None]
  - ABSCESS [None]
  - ACQUIRED OESOPHAGEAL WEB [None]
  - ADVERSE DRUG REACTION [None]
  - ARTHROPATHY [None]
  - BLOOD CHLORIDE INCREASED [None]
  - BREAST CANCER [None]
  - CHEST DISCOMFORT [None]
  - DRUG HYPERSENSITIVITY [None]
  - DYSPHAGIA [None]
  - EXOSTOSIS [None]
  - FISTULA DISCHARGE [None]
  - GASTROOESOPHAGEAL REFLUX DISEASE [None]
  - HAEMATOCHEZIA [None]
  - HERNIA [None]
  - HIATUS HERNIA [None]
  - HYPOAESTHESIA ORAL [None]
  - IMPAIRED HEALING [None]
  - MALIGNANT MELANOMA [None]
  - MASS [None]
  - MUSCLE SPASMS [None]
  - MUSCULOSKELETAL DISCOMFORT [None]
  - ORAL INFECTION [None]
  - OSTEONECROSIS [None]
  - PARAESTHESIA [None]
  - PYOGENIC GRANULOMA [None]
  - STOMATITIS [None]
  - TEMPOROMANDIBULAR JOINT SYNDROME [None]
  - TOOTH ABSCESS [None]
  - VAGINAL DISORDER [None]
